FAERS Safety Report 17374084 (Version 2)
Quarter: 2020Q2

REPORT INFORMATION
  Report Type: Report from Study
  Country: US (occurrence: US)
  Receive Date: 20200205
  Receipt Date: 20200408
  Transmission Date: 20200713
  Serious: No
  Sender: FDA-Public Use
  Company Number: NVSC2020US030108

PATIENT
  Age: 4 Year
  Sex: Female

DRUGS (1)
  1. ILARIS [Suspect]
     Active Substance: CANAKINUMAB
     Indication: CRYOPYRIN ASSOCIATED PERIODIC SYNDROME
     Dosage: 40 MG, Q2MO (EVERY 8 WEEKS)
     Route: 058
     Dates: start: 2018

REACTIONS (1)
  - Pharyngitis [Unknown]

NARRATIVE: CASE EVENT DATE: 201801
